FAERS Safety Report 6090533-7 (Version None)
Quarter: 2009Q1

REPORT INFORMATION
  Report Type: 
  Country: None (occurrence: None)
  Receive Date: 20090224
  Receipt Date: 20090109
  Transmission Date: 20090719
  Serious: No
  Sender: FDA-Public Use
  Company Number: US-ABBOTT-09P-163-0496070-00

PATIENT
  Sex: Female
  Weight: 72.186 kg

DRUGS (3)
  1. SIMCOR [Suspect]
     Indication: BLOOD TRIGLYCERIDES INCREASED
     Dates: start: 20081215, end: 20081231
  2. SIMCOR [Suspect]
     Dates: start: 20081231
  3. ADVIL [Suspect]
     Indication: DRUG USE FOR UNKNOWN INDICATION
     Dates: start: 20081231, end: 20090105

REACTIONS (3)
  - FLUSHING [None]
  - NAUSEA [None]
  - RASH MACULAR [None]
